FAERS Safety Report 21967626 (Version 1)
Quarter: 2023Q1

REPORT INFORMATION
  Report Type: Spontaneous
  Country: ES (occurrence: ES)
  Receive Date: 20230208
  Receipt Date: 20230208
  Transmission Date: 20230417
  Serious: Yes (Other)
  Sender: FDA-Public Use
  Company Number: None

PATIENT
  Age: 47 Year
  Sex: Female

DRUGS (4)
  1. VANCOMYCIN [Suspect]
     Active Substance: VANCOMYCIN
     Indication: Meningitis
     Dosage: UNK
     Route: 042
     Dates: start: 20221207, end: 20221213
  2. RIFAMPIN [Suspect]
     Active Substance: RIFAMPIN
     Indication: Meningitis
     Dosage: 600 MG, 2X/DAY
     Route: 042
     Dates: start: 20221204, end: 20221207
  3. LINEZOLID [Concomitant]
     Active Substance: LINEZOLID
     Indication: Meningitis
     Dosage: 600 MG, 2X/DAY
     Route: 042
     Dates: start: 20221204, end: 20221207
  4. CEFTAZIDIMA [CEFTAZIDIME] [Concomitant]
     Indication: Respiratory tract infection
     Dosage: UNK
     Route: 042
     Dates: start: 20221128, end: 20221207

REACTIONS (2)
  - Acute generalised exanthematous pustulosis [Recovered/Resolved]
  - Product use in unapproved indication [Unknown]

NARRATIVE: CASE EVENT DATE: 20221212
